FAERS Safety Report 25133619 (Version 1)
Quarter: 2025Q1

REPORT INFORMATION
  Report Type: Spontaneous
  Country: ES (occurrence: ES)
  Receive Date: 20250328
  Receipt Date: 20250328
  Transmission Date: 20250409
  Serious: Yes (Hospitalization)
  Sender: BAUSCH AND LOMB
  Company Number: None

PATIENT
  Age: 21 Year
  Sex: Female
  Weight: 127 kg

DRUGS (2)
  1. HYDROCORTISONE [Interacting]
     Active Substance: HYDROCORTISONE
     Indication: Craniopharyngioma
     Route: 065
     Dates: start: 20250121, end: 20250221
  2. DESMOPRESSIN [Interacting]
     Active Substance: DESMOPRESSIN
     Indication: Craniopharyngioma
     Route: 060
     Dates: start: 20250204, end: 20250305

REACTIONS (2)
  - Generalised oedema [Recovering/Resolving]
  - Weight increased [Recovering/Resolving]

NARRATIVE: CASE EVENT DATE: 20250214
